FAERS Safety Report 6537818-5 (Version None)
Quarter: 2010Q1

REPORT INFORMATION
  Report Type: 
  Country: None (occurrence: None)
  Receive Date: 20100114
  Receipt Date: 20100105
  Transmission Date: 20100710
  Serious: Yes (Hospitalization, Other)
  Sender: FDA-Public Use
  Company Number: AU-ASTRAZENECA-2009SE04966

PATIENT
  Age: 83 Year
  Sex: Male
  Weight: 77 kg

DRUGS (4)
  1. CRESTOR [Suspect]
     Route: 048
  2. CRESTOR [Suspect]
     Route: 048
  3. ATENOLOL [Concomitant]
     Indication: BLOOD PRESSURE
     Dosage: 5 MG
     Route: 048
     Dates: start: 20060101
  4. TRILARE [Concomitant]
     Indication: BLOOD PRESSURE
     Route: 048
     Dates: start: 20060101

REACTIONS (9)
  - FOLATE DEFICIENCY [None]
  - HEPATITIS [None]
  - MYOSITIS [None]
  - OSTEOPOROTIC FRACTURE [None]
  - PERICARDITIS [None]
  - PLEURAL EFFUSION [None]
  - SEROSITIS [None]
  - THORACIC VERTEBRAL FRACTURE [None]
  - VITAMIN B12 DEFICIENCY [None]
